FAERS Safety Report 16806319 (Version 1)
Quarter: 2019Q3

REPORT INFORMATION
  Report Type: Spontaneous
  Country: US (occurrence: US)
  Receive Date: 20190913
  Receipt Date: 20190913
  Transmission Date: 20191005
  Serious: No
  Sender: FDA-Public Use
  Company Number: US-PERRIGO-18US011522

PATIENT
  Age: 59 Year
  Sex: Female
  Weight: 63.95 kg

DRUGS (5)
  1. MINOXIDIL. [Suspect]
     Active Substance: MINOXIDIL
     Dosage: 0.5 ML, QD
     Route: 061
     Dates: start: 201809, end: 201809
  2. MINOXIDIL. [Suspect]
     Active Substance: MINOXIDIL
     Indication: ALOPECIA
     Dosage: 1 ML, QD
     Route: 061
     Dates: start: 201809, end: 201809
  3. MINOXIDIL. [Suspect]
     Active Substance: MINOXIDIL
     Dosage: 0.25 ML, QD
     Route: 061
     Dates: start: 201809, end: 201809
  4. MINOXIDIL. [Suspect]
     Active Substance: MINOXIDIL
     Dosage: 1 ML, BID
     Route: 061
     Dates: start: 20181001
  5. RANITIDINE. [Concomitant]
     Active Substance: RANITIDINE
     Indication: GASTROOESOPHAGEAL REFLUX DISEASE
     Dosage: UNK
     Route: 048

REACTIONS (5)
  - Inappropriate schedule of product administration [Recovered/Resolved]
  - Condition aggravated [Not Recovered/Not Resolved]
  - Oedema [Recovered/Resolved]
  - Underdose [Recovered/Resolved]
  - Weight increased [Recovered/Resolved]

NARRATIVE: CASE EVENT DATE: 201809
